FAERS Safety Report 9826051 (Version 1)
Quarter: 2014Q1

REPORT INFORMATION
  Report Type: Spontaneous
  Country: US (occurrence: None)
  Receive Date: 20140116
  Receipt Date: 20140116
  Transmission Date: 20141002
  Serious: No
  Sender: FDA-Public Use
  Company Number: None

PATIENT
  Age: 39 Year
  Sex: Male
  Weight: 81.65 kg

DRUGS (7)
  1. SAPHRIS [Suspect]
     Indication: MULTIPLE SCLEROSIS
     Dosage: TAKEN UNDER THE TONGUE
     Dates: start: 20131204, end: 20140106
  2. MULTIVITAMIN [Concomitant]
  3. SUPER B COMPLEX [Concomitant]
  4. FLAX SEED OIL [Concomitant]
  5. D3 [Concomitant]
  6. CRANBERRY GEL [Concomitant]
  7. HYDROCODONE [Concomitant]

REACTIONS (2)
  - Feeling abnormal [None]
  - Product packaging issue [None]
